FAERS Safety Report 8259352-7 (Version None)
Quarter: 2012Q2

REPORT INFORMATION
  Report Type: 
  Country: None (occurrence: None)
  Receive Date: 20120404
  Receipt Date: 20120326
  Transmission Date: 20120825
  Serious: Yes (Hospitalization)
  Sender: FDA-Public Use
  Company Number: FR-ASTRAZENECA-2012SE21147

PATIENT
  Age: 71 Year
  Sex: Male

DRUGS (4)
  1. OMEPRAZOLE [Suspect]
     Route: 048
     Dates: end: 20110501
  2. PLAVIX [Concomitant]
  3. INDAPAMIDE [Concomitant]
  4. NEBIVOLOL HCL [Concomitant]

REACTIONS (3)
  - HYPOMAGNESAEMIA [None]
  - BRONCHITIS [None]
  - HYPOCALCAEMIA [None]
